FAERS Safety Report 5488666-9 (Version None)
Quarter: 2007Q4

REPORT INFORMATION
  Report Type: 
  Country: None (occurrence: None)
  Receive Date: 20071016
  Receipt Date: 20071001
  Transmission Date: 20080405
  Serious: Yes (Other)
  Sender: FDA-Public Use
  Company Number: 2007S1000215

PATIENT
  Sex: Female

DRUGS (4)
  1. SORIATANE [Suspect]
     Indication: ICHTHYOSIS
     Dosage: 35 MG;QD;PO;PO
     Route: 048
     Dates: start: 20070501, end: 20070601
  2. SORIATANE [Suspect]
     Indication: ICHTHYOSIS
     Dosage: 35 MG;QD;PO;PO
     Route: 048
  3. ESTROPROGESTATIVE [Concomitant]
  4. CONTRACEPTIVE [Concomitant]

REACTIONS (2)
  - DRUG EXPOSURE DURING PREGNANCY [None]
  - PREGNANCY [None]
